FAERS Safety Report 5289448-3 (Version None)
Quarter: 2007Q2

REPORT INFORMATION
  Report Type: 
  Country: None (occurrence: None)
  Receive Date: 20070402
  Receipt Date: 20070320
  Transmission Date: 20071010
  Serious: Yes (Other)
  Sender: FDA-Public Use
  Company Number: 2007BI006255

PATIENT
  Sex: Female

DRUGS (1)
  1. AVONEX [Suspect]
     Indication: MULTIPLE SCLEROSIS
     Dosage: 30 UG; QW; IM
     Route: 030
     Dates: start: 20010629, end: 20040810

REACTIONS (4)
  - BLADDER DISORDER [None]
  - CEREBROVASCULAR ACCIDENT [None]
  - HYPOTHYROIDISM [None]
  - URINARY RETENTION [None]
